FAERS Safety Report 16336099 (Version 1)
Quarter: 2019Q2

REPORT INFORMATION
  Report Type: Spontaneous
  Country: US (occurrence: US)
  Receive Date: 20190521
  Receipt Date: 20190521
  Transmission Date: 20190711
  Serious: No
  Sender: FDA-Public Use
  Company Number: US-DSJP-DSU-2019-117454

PATIENT

DRUGS (2)
  1. PILOCARPINE HCL [Suspect]
     Active Substance: PILOCARPINE HYDROCHLORIDE
     Indication: SJOGREN^S SYNDROME
     Dosage: 1 DF, QID (CAPSULE)
     Route: 048
     Dates: start: 201904
  2. EVOXAC AG [Suspect]
     Active Substance: CEVIMELINE HYDROCHLORIDE
     Indication: SJOGREN^S SYNDROME
     Dosage: 1 DF, BID (CAPSULE)
     Route: 048
     Dates: start: 2015, end: 201904

REACTIONS (3)
  - Drug ineffective [Unknown]
  - Dry mouth [Unknown]
  - Off label use [Recovered/Resolved]

NARRATIVE: CASE EVENT DATE: 2015
